FAERS Safety Report 10207951 (Version 1)
Quarter: 2014Q2

REPORT INFORMATION
  Report Type: Spontaneous
  Country: US (occurrence: US)
  Receive Date: 20140530
  Receipt Date: 20140530
  Transmission Date: 20141212
  Serious: No
  Sender: FDA-Public Use
  Company Number: US-GLAXOSMITHKLINE-A1065865A

PATIENT
  Age: 49 Year
  Sex: Female

DRUGS (6)
  1. VENTOLIN [Suspect]
     Indication: ASTHMA
     Dosage: 2PUFF AS REQUIRED
     Route: 055
     Dates: start: 201211
  2. LISINOPRIL [Concomitant]
  3. OMEPRAZOLE [Concomitant]
  4. CETIRIZINE [Concomitant]
  5. FLONASE [Concomitant]
  6. CLONAZEPAM [Concomitant]

REACTIONS (3)
  - Upper respiratory tract infection [Not Recovered/Not Resolved]
  - Blood pressure increased [Unknown]
  - Malaise [Unknown]
